FAERS Safety Report 12645419 (Version 1)
Quarter: 2016Q3

REPORT INFORMATION
  Report Type: Spontaneous
  Country: US (occurrence: US)
  Receive Date: 20160811
  Receipt Date: 20160811
  Transmission Date: 20161109
  Serious: No
  Sender: FDA-Public Use
  Company Number: US-JAZZ-2016-US-004782

PATIENT
  Sex: Male

DRUGS (5)
  1. XYREM [Suspect]
     Active Substance: SODIUM OXYBATE
     Dosage: 4.5 TO 5 G ONCE NIGHTLY
     Route: 048
     Dates: start: 201510
  2. ADVIL [Concomitant]
     Active Substance: IBUPROFEN
  3. LAMICTAL [Concomitant]
     Active Substance: LAMOTRIGINE
  4. XYREM [Suspect]
     Active Substance: SODIUM OXYBATE
     Indication: NARCOLEPSY
     Dosage: 2.25 G, BID
     Route: 048
     Dates: start: 201509, end: 201510
  5. XYREM [Suspect]
     Active Substance: SODIUM OXYBATE
     Indication: CATAPLEXY
     Dosage: DOSE ADJUSTMEMNTS
     Route: 048

REACTIONS (1)
  - Intentional product misuse [Unknown]
